FAERS Safety Report 11751538 (Version 3)
Quarter: 2016Q3

REPORT INFORMATION
  Report Type: Report from Study
  Country: CA (occurrence: CA)
  Receive Date: 20151118
  Receipt Date: 20160727
  Transmission Date: 20161109
  Serious: Yes (Other)
  Sender: FDA-Public Use
  Company Number: CA-VALIDUS PHARMACEUTICALS LLC-CA-2015VAL000704

PATIENT

DRUGS (3)
  1. METOPROLOL TARTRATE. [Suspect]
     Active Substance: METOPROLOL TARTRATE
     Indication: CARCINOID SYNDROME
     Dosage: UNK
     Route: 048
  2. SANDOSTATIN [Suspect]
     Active Substance: OCTREOTIDE ACETATE
     Indication: CARCINOID SYNDROME
     Dosage: UNK
     Route: 058
     Dates: start: 20130410
  3. SANDOSTATIN LAR DEPOT [Suspect]
     Active Substance: OCTREOTIDE ACETATE
     Indication: CARCINOID SYNDROME
     Dosage: 30 MG, QMO (EVERY 4 WEEKS)
     Route: 030
     Dates: start: 20140424

REACTIONS (15)
  - Memory impairment [Unknown]
  - Diarrhoea [Unknown]
  - Blood pressure increased [Unknown]
  - Limb discomfort [Unknown]
  - Epigastric discomfort [Unknown]
  - Abdominal distension [Unknown]
  - Muscle strain [Recovering/Resolving]
  - Gastrointestinal disorder [Unknown]
  - Nasopharyngitis [Unknown]
  - Blood thyroid stimulating hormone decreased [Unknown]
  - Ligament sprain [Recovering/Resolving]
  - Heart rate decreased [Unknown]
  - Fall [Unknown]
  - Fistula [Unknown]
  - Body temperature decreased [Unknown]

NARRATIVE: CASE EVENT DATE: 2013
